FAERS Safety Report 17464818 (Version 1)
Quarter: 2020Q1

REPORT INFORMATION
  Report Type: Spontaneous
  Country: US (occurrence: US)
  Receive Date: 20200226
  Receipt Date: 20200226
  Transmission Date: 20200409
  Serious: Yes (Other)
  Sender: FDA-Public Use
  Company Number: US-ROCHE-2357892

PATIENT
  Age: 53 Year
  Sex: Male
  Weight: 111.68 kg

DRUGS (1)
  1. ALECENSA [Suspect]
     Active Substance: ALECTINIB HYDROCHLORIDE
     Indication: SMALL CELL LUNG CANCER
     Dosage: ONGOING : YES
     Route: 065

REACTIONS (3)
  - Sunburn [Unknown]
  - Skin discolouration [Unknown]
  - Radiation injury [Unknown]
